FAERS Safety Report 6210727-7 (Version None)
Quarter: 2009Q2

REPORT INFORMATION
  Report Type: 
  Country: None (occurrence: None)
  Receive Date: 20090601
  Receipt Date: 20090520
  Transmission Date: 20091009
  Serious: Yes (Hospitalization)
  Sender: FDA-Public Use
  Company Number: US-PFIZER INC-2009188534

PATIENT
  Sex: Female
  Weight: 77 kg

DRUGS (13)
  1. IRINOTECAN HCL [Suspect]
     Indication: SMALL CELL LUNG CANCER STAGE UNSPECIFIED
     Dosage: 60 MG/M2, UNK
     Route: 042
     Dates: start: 20090224
  2. CARBOPLATIN [Suspect]
     Indication: SMALL CELL LUNG CANCER STAGE UNSPECIFIED
     Dosage: AUC 4
     Route: 042
     Dates: start: 20090224
  3. TYLENOL W/ CODEINE [Concomitant]
     Dosage: 300-30 MG
     Route: 048
     Dates: start: 20090304
  4. AUGMENTIN [Concomitant]
     Dosage: 500 MG, UNK
     Route: 048
     Dates: start: 20090304
  5. LIPITOR [Concomitant]
     Dosage: 80 MG, 1X/DAY
     Route: 048
     Dates: start: 20080903
  6. COZAAR [Concomitant]
     Dosage: 100 MG, 1X/DAY
     Route: 048
  7. VICODIN [Concomitant]
     Dosage: 5-500 MG
     Dates: start: 20090423
  8. FUROSEMIDE [Concomitant]
     Dosage: 40 MG, UNK
     Route: 048
     Dates: start: 20090331
  9. POTASSIUM [Concomitant]
     Dosage: 20 MEQ, UNK
     Dates: start: 20090304
  10. ACETAMINOPHEN [Concomitant]
     Dosage: 300 MG, UNK
     Dates: start: 20090304
  11. PLAVIX [Concomitant]
     Dosage: 75 MG, UNK
     Route: 048
  12. ACETYLSALICYLIC ACID [Concomitant]
     Dosage: 81 MG, UNK
     Route: 048
  13. ALBUTEROL [Concomitant]
     Dosage: 90 UG, UNK

REACTIONS (2)
  - CHEST PAIN [None]
  - PANCYTOPENIA [None]
